FAERS Safety Report 7357124-9 (Version None)
Quarter: 2011Q1

REPORT INFORMATION
  Report Type: 
  Country: None (occurrence: None)
  Receive Date: 20110308
  Receipt Date: 20110222
  Transmission Date: 20110831
  Serious: Yes (Death)
  Sender: FDA-Public Use
  Company Number: JP-2011-0462

PATIENT
  Sex: Male

DRUGS (2)
  1. NAVELBINE. MFR: NO SPECIFIED [Suspect]
     Indication: NON-SMALL CELL LUNG CANCER
     Dosage: 20 MG/M2 IV
     Route: 042
  2. CISPLATIN [Concomitant]

REACTIONS (1)
  - SUDDEN DEATH [None]
